FAERS Safety Report 4781305-1 (Version None)
Quarter: 2005Q3

REPORT INFORMATION
  Report Type: 
  Country: None (occurrence: None)
  Receive Date: 20050928
  Receipt Date: 20050919
  Transmission Date: 20060218
  Serious: Yes (Other)
  Sender: FDA-Public Use
  Company Number: 2005GB01835

PATIENT
  Sex: Male

DRUGS (4)
  1. SEROQUEL [Suspect]
     Route: 048
  2. CARBAMAZEPINE [Concomitant]
  3. EPILIM [Concomitant]
     Dosage: 500 MG AM + 1000 MG NOCTE
  4. DIAZEPAM [Concomitant]

REACTIONS (1)
  - SEROTONIN SYNDROME [None]
